FAERS Safety Report 24313059 (Version 3)
Quarter: 2024Q4

REPORT INFORMATION
  Report Type: Spontaneous
  Country: ES (occurrence: ES)
  Receive Date: 20240912
  Receipt Date: 20241004
  Transmission Date: 20250115
  Serious: Yes (Hospitalization)
  Sender: PFIZER
  Company Number: ES-ROCHE-10000069163

PATIENT
  Age: 51 Year
  Sex: Female
  Weight: 63.3 kg

DRUGS (61)
  1. DOXORUBICIN HYDROCHLORIDE [Suspect]
     Active Substance: DOXORUBICIN HYDROCHLORIDE
     Indication: B-cell lymphoma
     Dosage: 81.5 MG, EVERY 3 WEEKS
     Route: 042
     Dates: start: 20240501
  2. DOXORUBICIN HYDROCHLORIDE [Suspect]
     Active Substance: DOXORUBICIN HYDROCHLORIDE
     Indication: Diffuse large B-cell lymphoma
     Dosage: 80 MG, EVERY 3 WEEKS
     Route: 042
     Dates: start: 20240730
  3. DOXORUBICIN HYDROCHLORIDE [Suspect]
     Active Substance: DOXORUBICIN HYDROCHLORIDE
     Dosage: 80 MG, EVERY 3 WEEKS
     Route: 042
     Dates: start: 20240820
  4. MABTHERA [Suspect]
     Active Substance: RITUXIMAB
     Indication: B-cell lymphoma
     Dosage: 611 MG, EVERY 3 WEEKS
     Route: 042
     Dates: start: 20240430
  5. MABTHERA [Suspect]
     Active Substance: RITUXIMAB
     Indication: Diffuse large B-cell lymphoma
     Dosage: 611.25 MG, EVERY 3 WEEKS
     Route: 042
  6. MABTHERA [Suspect]
     Active Substance: RITUXIMAB
     Dosage: 611.25 MG, EVERY 3 WEEKS
     Route: 042
     Dates: start: 20240730
  7. COLUMVI [Suspect]
     Active Substance: GLOFITAMAB-GXBM
     Indication: Diffuse large B-cell lymphoma
     Dosage: 2.5 MG, CYCLIC 3 TIMES A WEEK
     Route: 042
     Dates: start: 20240604
  8. COLUMVI [Suspect]
     Active Substance: GLOFITAMAB-GXBM
     Dosage: 2.5 MG, CYCLIC 3 TIMES A WEEK
     Route: 042
     Dates: start: 20240723
  9. POLIVY [Suspect]
     Active Substance: POLATUZUMAB VEDOTIN-PIIQ
     Indication: B-cell lymphoma
     Dosage: 118.26 MG, EVERY 3 WEEKS
     Route: 042
     Dates: start: 20240430
  10. CYCLOPHOSPHAMIDE [Suspect]
     Active Substance: CYCLOPHOSPHAMIDE
     Indication: B-cell lymphoma
     Dosage: 1222 MG, EVERY 3 WEEKS
     Route: 042
     Dates: start: 20240501
  11. CYCLOPHOSPHAMIDE [Suspect]
     Active Substance: CYCLOPHOSPHAMIDE
     Indication: Diffuse large B-cell lymphoma
     Dosage: 1207 MG, EVERY 3 WEEKS
     Route: 042
     Dates: start: 20240730
  12. CYCLOPHOSPHAMIDE [Suspect]
     Active Substance: CYCLOPHOSPHAMIDE
     Dosage: 1207 MG, EVERY 3 WEEKS
     Route: 042
     Dates: start: 20240820
  13. PREDNISONE [Suspect]
     Active Substance: PREDNISONE
     Indication: B-cell lymphoma
     Dosage: 100 MG, EVERY 3 WEEKS
     Route: 048
     Dates: start: 20240430
  14. PREDNISONE [Suspect]
     Active Substance: PREDNISONE
     Indication: Diffuse large B-cell lymphoma
     Dosage: 100 MG, EVERY 3 WEEKS
     Route: 048
     Dates: start: 20240803
  15. PREDNISONE [Suspect]
     Active Substance: PREDNISONE
     Dosage: 100 MG, EVERY 3 WEEKS
     Route: 048
     Dates: start: 20240820
  16. FILGRASTIM [Concomitant]
     Active Substance: FILGRASTIM
     Indication: Neutropenia
     Dosage: 300 UG, 1X/DAY
     Route: 058
     Dates: start: 20240716, end: 20240719
  17. FILGRASTIM [Concomitant]
     Active Substance: FILGRASTIM
     Dosage: 300 UG, 1X/DAY
     Route: 058
     Dates: start: 20240806, end: 20240809
  18. FOLIC ACID [Concomitant]
     Active Substance: FOLIC ACID
     Indication: Prophylaxis
     Dosage: 5 MG, CYCLIC (1/3 WEEK)
     Route: 048
     Dates: start: 20240501
  19. DIOSMIN\HESPERIDIN [Concomitant]
     Active Substance: DIOSMIN\HESPERIDIN
     Indication: Haemorrhoids
     Dosage: 500 MG, 2X/DAY
     Route: 048
     Dates: start: 20240717
  20. PANTOPRAZOLE [Concomitant]
     Active Substance: PANTOPRAZOLE
     Indication: Gastrointestinal disorder prophylaxis
     Dosage: 40 MG, 1X/DAY
     Route: 042
     Dates: start: 20240430
  21. PANTOPRAZOLE [Concomitant]
     Active Substance: PANTOPRAZOLE
     Dosage: 40 MG, 1X/DAY
     Route: 048
     Dates: start: 20240430
  22. PANTOPRAZOLE [Concomitant]
     Active Substance: PANTOPRAZOLE
     Dosage: 40 MG, 1X/DAY
     Route: 042
     Dates: start: 20240806, end: 20240806
  23. MEROPENEM [Concomitant]
     Active Substance: MEROPENEM
     Dosage: 1000 MG, 3X/DAY
     Route: 042
     Dates: start: 20240808, end: 20240812
  24. CEFEPIME [Concomitant]
     Active Substance: CEFEPIME HYDROCHLORIDE
     Dosage: 2 G, 3X/DAY
     Route: 042
     Dates: start: 20240806, end: 20240808
  25. PUNTUALSENNA [Concomitant]
     Indication: Constipation prophylaxis
     Dosage: 0.3 ML, AS NEEDED
     Dates: start: 20240717
  26. ACYCLOVIR [Concomitant]
     Active Substance: ACYCLOVIR
     Indication: Prophylaxis
     Dosage: 800 MG, 1X/DAY
     Route: 048
  27. ONDANSETRON [Concomitant]
     Active Substance: ONDANSETRON
     Indication: Prophylaxis of nausea and vomiting
     Dosage: 8 MG
     Dates: start: 20240717
  28. ONDANSETRON [Concomitant]
     Active Substance: ONDANSETRON
     Dosage: 8 MG, 1X/DAY
     Route: 042
     Dates: start: 20240730, end: 20240730
  29. ONDANSETRON [Concomitant]
     Active Substance: ONDANSETRON
     Dosage: 8 MG, 1X/DAY
     Route: 042
     Dates: start: 20240807, end: 20240807
  30. BEMIPARIN SODIUM [Concomitant]
     Active Substance: BEMIPARIN SODIUM
     Indication: Thrombosis prophylaxis
     Dosage: 3500 IU, 1X/DAY
     Route: 058
     Dates: start: 20240810, end: 20240812
  31. NYSTATIN [Concomitant]
     Active Substance: NYSTATIN
     Indication: Mucosal inflammation
     Dosage: 10 ML, 3X/DAY
     Route: 048
     Dates: start: 20240717
  32. ANSO [LANSOPRAZOLE] [Concomitant]
     Indication: Haemorrhoids
     Dosage: UNK, 3X/DAY
     Route: 061
  33. FUROSEMIDE [Concomitant]
     Active Substance: FUROSEMIDE
     Indication: Prophylaxis
     Dosage: 20 MG
     Route: 042
     Dates: start: 20240718
  34. FUROSEMIDE [Concomitant]
     Active Substance: FUROSEMIDE
     Dosage: 20 MG
     Route: 042
     Dates: start: 20240809, end: 20240809
  35. SULFAMETHOXAZOLE [Concomitant]
     Active Substance: SULFAMETHOXAZOLE
     Indication: Antibiotic prophylaxis
     Dosage: 800 MG, EVERY 3 WEEKS
     Route: 048
     Dates: start: 20240501
  36. DEXCHLORPHENIRAMINE [Concomitant]
     Active Substance: DEXCHLORPHENIRAMINE
     Indication: Prophylaxis
     Dosage: 5 MG, 1X/DAY
     Route: 042
     Dates: start: 20240723, end: 20240723
  37. DEXCHLORPHENIRAMINE [Concomitant]
     Active Substance: DEXCHLORPHENIRAMINE
     Dosage: 5 MG, 1X/DAY
     Route: 042
     Dates: start: 20240730, end: 20240730
  38. DEXCHLORPHENIRAMINE [Concomitant]
     Active Substance: DEXCHLORPHENIRAMINE
     Dosage: 5 MG, 1X/DAY
     Route: 042
     Dates: start: 20240820, end: 20240820
  39. CALCIFEDIOL [Concomitant]
     Active Substance: CALCIFEDIOL
     Indication: Vitamin supplementation
     Dosage: 0.27 MG, MONTHLY
     Route: 048
  40. VANCOMYCIN [Concomitant]
     Active Substance: VANCOMYCIN
     Dosage: 1000 MG, 1X/DAY
     Route: 042
     Dates: start: 20240806, end: 20240807
  41. VANCOMYCIN [Concomitant]
     Active Substance: VANCOMYCIN
     Dosage: FREQ:.33 D;
     Route: 042
     Dates: start: 20240807, end: 20240811
  42. VANCOMYCIN [Concomitant]
     Active Substance: VANCOMYCIN
     Dosage: FREQ:.25 D;
     Dates: start: 20240807, end: 20240815
  43. ACETAMINOPHEN [Concomitant]
     Active Substance: ACETAMINOPHEN
     Indication: Prophylaxis
     Dosage: 1000 MG, AS NEEDED
     Route: 042
     Dates: start: 20240717, end: 20240720
  44. ACETAMINOPHEN [Concomitant]
     Active Substance: ACETAMINOPHEN
     Indication: Febrile neutropenia
     Dosage: 1000 MG, 1X/DAY AS NEEDED
     Route: 042
     Dates: start: 20240723, end: 20240723
  45. ACETAMINOPHEN [Concomitant]
     Active Substance: ACETAMINOPHEN
     Dosage: 1000 MG
     Route: 042
     Dates: start: 20240730, end: 20240730
  46. ACETAMINOPHEN [Concomitant]
     Active Substance: ACETAMINOPHEN
     Dosage: 1000 MG, AS NEEDED
     Route: 042
     Dates: start: 20240806, end: 20240810
  47. ACETAMINOPHEN [Concomitant]
     Active Substance: ACETAMINOPHEN
     Dosage: 1000 MG, AS NEEDED
     Route: 042
     Dates: start: 20240820, end: 20240820
  48. ACETAMINOPHEN [Concomitant]
     Active Substance: ACETAMINOPHEN
     Dosage: 1000 MG, AS NEEDED
     Route: 042
     Dates: start: 20220903, end: 20240903
  49. NOCTAMID [DIPHENHYDRAMINE HYDROCHLORIDE] [Concomitant]
     Indication: Prophylaxis
     Dosage: 1 MG, AS NEEDED
     Route: 048
     Dates: start: 20240430
  50. PEGFILGRASTIM [Concomitant]
     Active Substance: PEGFILGRASTIM
     Indication: Prophylaxis
     Dosage: 6 MG, 1X/DAY
     Route: 058
     Dates: start: 20240710, end: 20240710
  51. PEGFILGRASTIM [Concomitant]
     Active Substance: PEGFILGRASTIM
     Dosage: 6 MG, 1X/DAY
     Route: 058
     Dates: start: 20240730, end: 20240730
  52. PEGFILGRASTIM [Concomitant]
     Active Substance: PEGFILGRASTIM
     Dosage: 6 MG, 1X/DAY
     Route: 058
     Dates: start: 20240731, end: 20240731
  53. PEGFILGRASTIM [Concomitant]
     Active Substance: PEGFILGRASTIM
     Dosage: 6 MG, 1X/DAY
     Route: 058
     Dates: start: 20240821, end: 20240821
  54. TRIMETHOPRIM [Concomitant]
     Active Substance: TRIMETHOPRIM
     Indication: Antibiotic prophylaxis
     Dosage: 160 MG, CYCLIC (1/3 OF WEEK)
     Route: 048
     Dates: start: 20240501
  55. LEVOFLOXACIN [Concomitant]
     Active Substance: LEVOFLOXACIN
     Indication: Neutropenia
     Dosage: 500 MG, 2X/DAY
     Route: 048
     Dates: start: 20240722, end: 20240722
  56. LEVOFLOXACIN [Concomitant]
     Active Substance: LEVOFLOXACIN
     Indication: Prophylaxis
  57. HUMAN RED BLOOD CELL [Concomitant]
     Active Substance: HUMAN RED BLOOD CELL
     Indication: Anaemia
     Dosage: 1 IU, 1X/DAY
     Route: 042
     Dates: start: 20240718, end: 20240718
  58. HUMAN RED BLOOD CELL [Concomitant]
     Active Substance: HUMAN RED BLOOD CELL
     Dosage: UNK UNK, SINGLE
     Dates: start: 20240809, end: 20240809
  59. DEXAMETHASONE [Concomitant]
     Active Substance: DEXAMETHASONE
     Dosage: 20 MG, 1X/DAY
     Route: 042
     Dates: start: 20240723, end: 20240723
  60. PIPERACILLIN SODIUM\TAZOBACTAM SODIUM [Concomitant]
     Active Substance: PIPERACILLIN SODIUM\TAZOBACTAM SODIUM
     Indication: Febrile neutropenia
     Dosage: 4 G, CYCLIC ONCE IN 4 DAYS
     Route: 042
     Dates: start: 20240717, end: 20240722
  61. LORMETAZEPAM [Concomitant]
     Active Substance: LORMETAZEPAM
     Dosage: 2 MG, AS NEEDED
     Route: 048
     Dates: start: 20240703

REACTIONS (1)
  - Febrile neutropenia [Recovered/Resolved]

NARRATIVE: CASE EVENT DATE: 20240827
